FAERS Safety Report 23420952 (Version 1)
Quarter: 2024Q1

REPORT INFORMATION
  Report Type: Spontaneous
  Country: PT (occurrence: PT)
  Receive Date: 20240119
  Receipt Date: 20240119
  Transmission Date: 20240409
  Serious: Yes (Other)
  Sender: FDA-Public Use
  Company Number: PT-MACLEODS PHARMACEUTICALS US LTD-MAC2024045312

PATIENT

DRUGS (1)
  1. TADALAFIL [Suspect]
     Active Substance: TADALAFIL
     Indication: Erectile dysfunction
     Dosage: 5 MILLIGRAM (PILLS) (RECREATIONAL), STOPPED ON 25 OR 26 JAN 2023
     Route: 065
     Dates: start: 20230121

REACTIONS (1)
  - Acute generalised exanthematous pustulosis [Recovered/Resolved]
